FAERS Safety Report 8958783 (Version 1)
Quarter: 2012Q4

REPORT INFORMATION
  Report Type: 
  Country: US (occurrence: US)
  Receive Date: 20121212
  Receipt Date: 20121212
  Transmission Date: 20130627
  Serious: Yes (Hospitalization, Other)
  Sender: FDA-Public Use
  Company Number: US-BAYER-2012-128710

PATIENT
  Age: 18 Year
  Sex: Female
  Weight: 65.31 kg

DRUGS (8)
  1. YAZ [Suspect]
  2. YASMIN [Suspect]
  3. MAGIC MOUTHWASH [Concomitant]
     Dosage: UNK
     Dates: start: 20080515
  4. CEPHALEXIN [Concomitant]
     Dosage: 500 mg, UNK
     Dates: start: 20080515
  5. DARVOCET [Concomitant]
     Indication: PAIN
  6. VICODIN [Concomitant]
     Indication: PAIN
  7. ATENOLOL [Concomitant]
     Indication: VENTRICULAR TACHYCARDIA
  8. TOPROL [Concomitant]
     Indication: VENTRICULAR TACHYCARDIA
     Dosage: 25 mg, daily

REACTIONS (2)
  - Deep vein thrombosis [Recovering/Resolving]
  - Pulmonary embolism [Recovered/Resolved]
